FAERS Safety Report 5472744-4 (Version None)
Quarter: 2007Q4

REPORT INFORMATION
  Report Type: 
  Country: None (occurrence: None)
  Receive Date: 20071001
  Receipt Date: 20060918
  Transmission Date: 20080405
  Serious: No
  Sender: FDA-Public Use
  Company Number: US-ASTRAZENECA-2006UW18238

PATIENT
  Age: 59 Year
  Sex: Female

DRUGS (1)
  1. ARIMIDEX [Suspect]
     Indication: BREAST CANCER
     Dosage: ACCIDENTALLY TOOK 2 ARIMIDEX 1 MG TABLETS 15 MINUTES APART
     Route: 048

REACTIONS (3)
  - ACCIDENTAL OVERDOSE [None]
  - MUSCLE SPASMS [None]
  - PAIN [None]
